FAERS Safety Report 9363885 (Version 1)
Quarter: 2013Q2

REPORT INFORMATION
  Report Type: Spontaneous
  Country: CA (occurrence: None)
  Receive Date: 20130618
  Receipt Date: 20130618
  Transmission Date: 20140414
  Serious: Yes (Hospitalization)
  Sender: FDA-Public Use
  Company Number: IMP_06718_2013

PATIENT
  Age: 20 Year
  Sex: Male

DRUGS (4)
  1. DOXYCYLINE [Suspect]
     Indication: TENOSYNOVITIS
     Dosage: DF, 2 DAYS UNTIL NOT CONTINUING
  2. CO-TRIMOXAZOLE [Suspect]
     Indication: TENOSYNOVITIS
     Dosage: (DF) 1 WEEK 3 DAYS UNTIL NOT CONTINUIING
  3. CEFTRIAXONE [Suspect]
  4. VANCOMYCIN [Suspect]

REACTIONS (12)
  - Stevens-Johnson syndrome [None]
  - Drug reaction with eosinophilia and systemic symptoms [None]
  - Drug interaction [None]
  - Human herpesvirus 6 infection [None]
  - Septic shock [None]
  - Respiratory failure [None]
  - Disseminated intravascular coagulation [None]
  - Splenic infarction [None]
  - Lymphadenopathy [None]
  - Toxicity to various agents [None]
  - Epstein-Barr virus infection [None]
  - Cytomegalovirus infection [None]
